FAERS Safety Report 6918980-9 (Version None)
Quarter: 2010Q3

REPORT INFORMATION
  Report Type: 
  Country: None (occurrence: None)
  Receive Date: 20100811
  Receipt Date: 20100802
  Transmission Date: 20110219
  Serious: Yes (Hospitalization)
  Sender: FDA-Public Use
  Company Number: ES-AMGEN-US402681

PATIENT
  Age: 77 Year
  Sex: Female

DRUGS (8)
  1. ENBREL [Suspect]
     Indication: PSORIATIC ARTHROPATHY
     Route: 058
     Dates: start: 20051001, end: 20100201
  2. IDEOS [Concomitant]
  3. SIMVASTATIN [Concomitant]
  4. METFORMIN HCL [Concomitant]
  5. MIXTARD HUMAN 70/30 [Concomitant]
     Dosage: UNKNOWN
  6. OMEPRAZOLE [Concomitant]
  7. ARTRINOVO [Concomitant]
  8. DAFLON [Concomitant]

REACTIONS (1)
  - PANCREATIC CARCINOMA [None]
